FAERS Safety Report 5452307-7 (Version None)
Quarter: 2007Q3

REPORT INFORMATION
  Report Type: 
  Country: None (occurrence: None)
  Receive Date: 20070912
  Receipt Date: 20070912
  Transmission Date: 20080115
  Serious: Yes (Hospitalization)
  Sender: FDA-Public Use
  Company Number: None

PATIENT
  Age: 50 Year
  Sex: Male

DRUGS (2)
  1. LIPITOR [Suspect]
     Indication: HYPERCHOLESTEROLAEMIA
     Dosage: PO
     Route: 048
     Dates: start: 20041101, end: 20051101
  2. SEIZURE MEDICATION NOS [Concomitant]

REACTIONS (15)
  - AMYOTROPHIC LATERAL SCLEROSIS [None]
  - APHASIA [None]
  - ASTHENIA [None]
  - DYSARTHRIA [None]
  - DYSPHAGIA [None]
  - FEELING DRUNK [None]
  - GAIT DISTURBANCE [None]
  - IMPAIRED WORK ABILITY [None]
  - LIVER FUNCTION TEST ABNORMAL [None]
  - MUSCLE CONTRACTIONS INVOLUNTARY [None]
  - MUSCLE SPASMS [None]
  - MUSCLE TWITCHING [None]
  - MUSCULAR WEAKNESS [None]
  - NERVOUSNESS [None]
  - PAIN IN EXTREMITY [None]
